FAERS Safety Report 16702808 (Version 1)
Quarter: 2019Q3

REPORT INFORMATION
  Report Type: Spontaneous
  Country: IT (occurrence: IT)
  Receive Date: 20190814
  Receipt Date: 20190814
  Transmission Date: 20191004
  Serious: Yes (Life-Threatening)
  Sender: FDA-Public Use
  Company Number: IT-TEVA-2019-IT-1091923

PATIENT
  Sex: Female
  Weight: 77 kg

DRUGS (2)
  1. CARBOPLATIN. [Suspect]
     Active Substance: CARBOPLATIN
     Indication: ENDOMETRIAL CANCER
     Route: 042
     Dates: start: 20190725, end: 20190725
  2. PACLITAXEL ACCORD HEALTHCARE ITALIA 6 MG/ML, CONCENTRATO PER SOLUZIONE [Suspect]
     Active Substance: PACLITAXEL
     Indication: ENDOMETRIAL CANCER
     Route: 042
     Dates: start: 20190725, end: 20190725

REACTIONS (2)
  - Hypotension [Recovered/Resolved]
  - Tachycardia [Recovered/Resolved]

NARRATIVE: CASE EVENT DATE: 20190725
